FAERS Safety Report 23516360 (Version 1)
Quarter: 2024Q1

REPORT INFORMATION
  Report Type: Spontaneous
  Country: CN (occurrence: CN)
  Receive Date: 20240213
  Receipt Date: 20240213
  Transmission Date: 20240410
  Serious: Yes (Hospitalization, Other)
  Sender: FDA-Public Use
  Company Number: None

PATIENT
  Age: 69 Year
  Sex: Female
  Weight: 43 kg

DRUGS (10)
  1. LINEZOLID [Suspect]
     Active Substance: LINEZOLID
     Indication: Meningitis tuberculous
     Dosage: 0.6 GRAM, QD
     Route: 048
     Dates: start: 20220224, end: 20220517
  2. CYCLOSERINE [Concomitant]
     Active Substance: CYCLOSERINE
     Indication: Meningitis tuberculous
     Dosage: 0.75 GRAM, QD
     Route: 048
     Dates: start: 20220224, end: 20220628
  3. DEXAMETHASONE [Concomitant]
     Active Substance: DEXAMETHASONE
     Indication: Meningitis tuberculous
     Dosage: 5 MILLIGRAM
     Route: 065
  4. ETHAMBUTOL [Concomitant]
     Active Substance: ETHAMBUTOL HYDROCHLORIDE
     Indication: Meningitis tuberculous
     Dosage: UNK
     Route: 048
     Dates: end: 20220224
  5. ETHAMBUTOL [Concomitant]
     Active Substance: ETHAMBUTOL HYDROCHLORIDE
     Dosage: 0.75 GRAM, QD
     Route: 048
     Dates: start: 20220224, end: 20220715
  6. ISONIAZID [Concomitant]
     Active Substance: ISONIAZID
     Indication: Meningitis tuberculous
     Dosage: 0.6 GRAM, QD
     Route: 048
     Dates: start: 20220224
  7. ISONIAZID [Concomitant]
     Active Substance: ISONIAZID
     Dosage: UNK
     Route: 048
     Dates: end: 20220224
  8. ISONIAZID [Concomitant]
     Active Substance: ISONIAZID
     Dosage: 0.1 GRAM (INJECTION)
     Route: 065
  9. LEVOFLOXACIN [Concomitant]
     Active Substance: LEVOFLOXACIN
     Indication: Meningitis tuberculous
     Dosage: 0.6 GRAM, QD
     Route: 048
     Dates: start: 20220224
  10. VITAMIN B6 [Concomitant]
     Active Substance: PYRIDOXINE HYDROCHLORIDE
     Indication: Meningitis tuberculous
     Dosage: 150 MILLIGRAM, QD
     Route: 048
     Dates: start: 20220224

REACTIONS (4)
  - Myelosuppression [Recovering/Resolving]
  - Neuropathy peripheral [Recovering/Resolving]
  - Anaemia [Recovering/Resolving]
  - Drug intolerance [Unknown]

NARRATIVE: CASE EVENT DATE: 20220101
